FAERS Safety Report 14067013 (Version 3)
Quarter: 2017Q4

REPORT INFORMATION
  Report Type: Spontaneous
  Country: DE (occurrence: DE)
  Receive Date: 20171009
  Receipt Date: 20171120
  Transmission Date: 20180321
  Serious: Yes (Other)
  Sender: FDA-Public Use
  Company Number: PHHY2017DE145877

PATIENT
  Sex: Male
  Weight: 80 kg

DRUGS (1)
  1. FORADIL [Suspect]
     Active Substance: FORMOTEROL FUMARATE
     Indication: BRONCHITIS CHRONIC
     Dosage: 2 DF, QD
     Route: 055
     Dates: start: 2005

REACTIONS (2)
  - Foreign body aspiration [Unknown]
  - Product physical issue [Unknown]

NARRATIVE: CASE EVENT DATE: 2017
